FAERS Safety Report 6032975-1 (Version None)
Quarter: 2009Q1

REPORT INFORMATION
  Report Type: 
  Country: None (occurrence: None)
  Receive Date: 20090109
  Receipt Date: 20090108
  Transmission Date: 20090719
  Serious: Yes (Hospitalization)
  Sender: FDA-Public Use
  Company Number: A0762681A

PATIENT
  Sex: Male

DRUGS (10)
  1. ADVAIR DISKUS 250/50 [Suspect]
     Indication: CHRONIC OBSTRUCTIVE PULMONARY DISEASE
     Dosage: 1PUFF TWICE PER DAY
     Route: 055
     Dates: start: 20050101
  2. ATROVENT [Concomitant]
  3. LASIX [Concomitant]
  4. LOPRESSOR [Concomitant]
  5. PLAVIX [Concomitant]
  6. LANOXIN [Concomitant]
  7. LISINOPRIL [Concomitant]
  8. PREVACID [Concomitant]
  9. TYLENOL (CAPLET) [Concomitant]
  10. UNSPECIFIED MEDICATION [Concomitant]

REACTIONS (4)
  - CARDIAC ARREST [None]
  - DRUG INEFFECTIVE [None]
  - DYSPNOEA [None]
  - MYOCARDIAL INFARCTION [None]
